FAERS Safety Report 11894211 (Version 1)
Quarter: 2016Q1

REPORT INFORMATION
  Report Type: Spontaneous
  Country: US (occurrence: None)
  Receive Date: 20160106
  Receipt Date: 20160106
  Transmission Date: 20160526
  Serious: Yes (Hospitalization)
  Sender: FDA-Public Use
  Company Number: None

PATIENT
  Age: 52 Year
  Sex: Male
  Weight: 110.5 kg

DRUGS (2)
  1. CARBOPLATIN. [Suspect]
     Active Substance: CARBOPLATIN
     Indication: LUNG ADENOCARCINOMA STAGE IV
     Dosage: AUC 6
     Dates: start: 20151124
  2. PEMETREXED [Suspect]
     Active Substance: PEMETREXED
     Indication: LUNG ADENOCARCINOMA STAGE IV
     Dates: start: 20151124

REACTIONS (6)
  - Mental status changes [None]
  - Meningitis [None]
  - Urinary incontinence [None]
  - Septic shock [None]
  - Anal incontinence [None]
  - Encephalitis [None]

NARRATIVE: CASE EVENT DATE: 20151228
